FAERS Safety Report 24087117 (Version 3)
Quarter: 2024Q3

REPORT INFORMATION
  Report Type: Spontaneous
  Country: AU (occurrence: AU)
  Receive Date: 20240713
  Receipt Date: 20240919
  Transmission Date: 20241017
  Serious: Yes (Hospitalization)
  Sender: AMGEN
  Company Number: AU-AMGEN-USASP2024133577

PATIENT
  Age: 22 Year
  Sex: Female

DRUGS (22)
  1. PREDNISONE [Suspect]
     Active Substance: PREDNISONE
     Indication: Hodgkin^s disease
     Dosage: 40 MILLIGRAM/SQ. METER
     Route: 065
     Dates: start: 20180815
  2. PREDNISONE [Suspect]
     Active Substance: PREDNISONE
     Dosage: 10 MILLIGRAM/SQ. METER
     Route: 065
     Dates: start: 20180822
  3. PREDNISONE [Suspect]
     Active Substance: PREDNISONE
     Dosage: UNK (CYCLE 1)
     Route: 065
     Dates: start: 20180828
  4. PREDNISONE [Suspect]
     Active Substance: PREDNISONE
     Dosage: UNK (CYCLE 2)
     Route: 065
     Dates: start: 20180905
  5. FILGRASTIM [Suspect]
     Active Substance: FILGRASTIM
     Indication: Product used for unknown indication
     Dosage: UNK
     Route: 065
  6. DOXORUBICIN HYDROCHLORIDE [Suspect]
     Active Substance: DOXORUBICIN HYDROCHLORIDE
     Indication: Hodgkin^s disease
     Dosage: 35 MILLIGRAM/SQ. METER, CYCLICAL (CYCLE 1)
     Route: 065
     Dates: start: 20180815
  7. DOXORUBICIN HYDROCHLORIDE [Suspect]
     Active Substance: DOXORUBICIN HYDROCHLORIDE
     Dosage: UNK (CYCLE 2 )
     Route: 065
     Dates: start: 20180905
  8. VINCRISTINE SULFATE [Suspect]
     Active Substance: VINCRISTINE SULFATE
     Indication: Hodgkin^s disease
     Dosage: 164 MILLIGRAM/SQ. METER
     Route: 065
     Dates: start: 20180822
  9. BLEOMYCIN SULFATE [Suspect]
     Active Substance: BLEOMYCIN SULFATE
     Indication: Hodgkin^s disease
     Dosage: 10 MILLIGRAM/SQ. METER, CYCLICAL
     Route: 065
     Dates: start: 20180822
  10. ETOPOSIDE [Suspect]
     Active Substance: ETOPOSIDE
     Indication: Hodgkin^s disease
     Dosage: 200 MILLIGRAM/SQ. METER
     Route: 065
     Dates: start: 20180815
  11. ETOPOSIDE [Suspect]
     Active Substance: ETOPOSIDE
     Dosage: UNK (CYCLE 1)
     Route: 065
     Dates: start: 20180817
  12. ETOPOSIDE [Suspect]
     Active Substance: ETOPOSIDE
     Dosage: UNK (CYCLE 2)
     Route: 065
     Dates: start: 20180905
  13. CYCLOPHOSPHAMIDE [Suspect]
     Active Substance: CYCLOPHOSPHAMIDE
     Indication: Hodgkin^s disease
     Dosage: 1250 MILLIGRAM/SQ. METER
     Route: 065
     Dates: start: 20180815
  14. CYCLOPHOSPHAMIDE [Suspect]
     Active Substance: CYCLOPHOSPHAMIDE
     Dosage: UNK (CYCLE 2)
     Route: 065
     Dates: start: 20180905
  15. PROCARBAZINE [Suspect]
     Active Substance: PROCARBAZINE
     Indication: Hodgkin^s disease
     Dosage: 100 MILLIGRAM/SQ. METER
     Route: 065
     Dates: start: 20180815
  16. PROCARBAZINE [Suspect]
     Active Substance: PROCARBAZINE
     Dosage: UNK (CYCLE 1)
     Route: 065
     Dates: start: 20180821
  17. PROCARBAZINE [Suspect]
     Active Substance: PROCARBAZINE
     Dosage: UNK (CYCLE 2)
     Route: 065
     Dates: start: 20180821
  18. OXYCODONE HYDROCHLORIDE [Concomitant]
     Active Substance: OXYCODONE HYDROCHLORIDE
     Dosage: UNK
     Route: 065
     Dates: start: 20180830
  19. IBUPROFEN [Concomitant]
     Active Substance: IBUPROFEN
     Dosage: UNK
     Route: 065
     Dates: start: 20180830
  20. PANADOL [Concomitant]
     Active Substance: ACETAMINOPHEN
     Dosage: UNK
     Route: 065
     Dates: start: 20180830
  21. VALACYCLOVIR HYDROCHLORIDE [Concomitant]
     Active Substance: VALACYCLOVIR HYDROCHLORIDE
     Dosage: UNK
     Route: 065
     Dates: start: 20180813
  22. BACTRIM [Concomitant]
     Active Substance: SULFAMETHOXAZOLE\TRIMETHOPRIM
     Dosage: UNK
     Route: 065
     Dates: start: 20180815

REACTIONS (2)
  - Pneumonia [Recovered/Resolved]
  - Bone pain [Recovered/Resolved]

NARRATIVE: CASE EVENT DATE: 20180830
